FAERS Safety Report 7179958-6 (Version None)
Quarter: 2010Q4

REPORT INFORMATION
  Report Type: 
  Country: None (occurrence: None)
  Receive Date: 20101123
  Receipt Date: 20100908
  Transmission Date: 20110411
  Serious: No
  Sender: FDA-Public Use
  Company Number: 016932

PATIENT
  Sex: Female
  Weight: 82 kg

DRUGS (5)
  1. CIMZIA [Suspect]
     Indication: CROHN'S DISEASE
     Dosage: (TWO SYRINGES SUBCUTANEOUS)  CROHN'S DISEASE
     Route: 058
     Dates: start: 20091001, end: 20100714
  2. METHOTREXATE [Concomitant]
  3. EFFEXOR XR [Concomitant]
  4. SEASONALE [Concomitant]
  5. PREDNISONE [Concomitant]

REACTIONS (2)
  - CROHN'S DISEASE [None]
  - DRUG INEFFECTIVE [None]
